FAERS Safety Report 13563078 (Version 1)
Quarter: 2017Q2

REPORT INFORMATION
  Report Type: Spontaneous
  Country: US (occurrence: US)
  Receive Date: 20170519
  Receipt Date: 20170519
  Transmission Date: 20170830
  Serious: No
  Sender: FDA-Public Use
  Company Number: US-MYLANLABS-2017M1006789

PATIENT
  Age: 56 Year
  Sex: Female
  Weight: 74.38 kg

DRUGS (1)
  1. ACEBUTOLOL HYDROCHLORIDE CAPSULES, USP [Suspect]
     Active Substance: ACEBUTOLOL HYDROCHLORIDE
     Indication: VENTRICULAR EXTRASYSTOLES
     Dosage: 200 MG, TID
     Route: 048
     Dates: start: 2014

REACTIONS (1)
  - Hypersensitivity [Not Recovered/Not Resolved]

NARRATIVE: CASE EVENT DATE: 20170131
